FAERS Safety Report 7562026-9 (Version None)
Quarter: 2011Q2

REPORT INFORMATION
  Report Type: 
  Country: None (occurrence: None)
  Receive Date: 20110622
  Receipt Date: 20110614
  Transmission Date: 20111010
  Serious: Yes (Hospitalization, Other)
  Sender: FDA-Public Use
  Company Number: JP-AMGEN-JPNSP2011021833

PATIENT
  Age: 48 Year
  Sex: Female
  Weight: 43 kg

DRUGS (6)
  1. ENBREL [Suspect]
     Indication: RHEUMATOID ARTHRITIS
     Dosage: 25 MG, 2X/WEEK
     Route: 058
     Dates: start: 20070801, end: 20110406
  2. ZANTAC [Concomitant]
     Indication: PROPHYLAXIS
     Dosage: 150 MG, 2X/DAY
     Route: 048
  3. PREDNISOLONE [Suspect]
     Indication: RHEUMATOID ARTHRITIS
     Dosage: 5 MG, 1X/DAY
     Route: 048
  4. VOLTAREN [Concomitant]
     Indication: RHEUMATOID ARTHRITIS
     Dosage: 37.5 MG, 2X/DAY
     Route: 048
     Dates: end: 20110428
  5. RHEUMATREX [Suspect]
     Indication: RHEUMATOID ARTHRITIS
     Dosage: 2 MG, 2X/WEEK
     Route: 048
     Dates: end: 20110421
  6. MARZULENE S [Concomitant]
     Indication: PROPHYLAXIS
     Dosage: 1 G, 2X/DAY
     Route: 048
     Dates: end: 20110428

REACTIONS (4)
  - RHEUMATOID ARTHRITIS [None]
  - SEPSIS [None]
  - STAPHYLOCOCCAL INFECTION [None]
  - DISSEMINATED INTRAVASCULAR COAGULATION [None]
